FAERS Safety Report 18257762 (Version 1)
Quarter: 2020Q3

REPORT INFORMATION
  Report Type: Report from Study
  Country: None (occurrence: US)
  Receive Date: 20200911
  Receipt Date: 20200911
  Transmission Date: 20201103
  Serious: Yes (Other)
  Sender: FDA-Public Use
  Company Number: US-ABBVIE-20K-163-3559404-00

PATIENT
  Age: 69 Year
  Sex: Female

DRUGS (1)
  1. HUMIRA [Suspect]
     Active Substance: ADALIMUMAB
     Indication: PSORIASIS
     Route: 058

REACTIONS (10)
  - Eye disorder [Not Recovered/Not Resolved]
  - Visual impairment [Not Recovered/Not Resolved]
  - Blood glucose fluctuation [Recovering/Resolving]
  - Weight increased [Recovering/Resolving]
  - Blindness transient [Not Recovered/Not Resolved]
  - Dry skin [Recovering/Resolving]
  - Cardiac assistance device user [Recovered/Resolved]
  - Thyroid disorder [Recovered/Resolved]
  - Diabetes mellitus [Recovering/Resolving]
  - Fatigue [Recovered/Resolved]

NARRATIVE: CASE EVENT DATE: 202007
